FAERS Safety Report 15714473 (Version 1)
Quarter: 2018Q4

REPORT INFORMATION
  Report Type: Spontaneous
  Country: CH (occurrence: CH)
  Receive Date: 20181212
  Receipt Date: 20181212
  Transmission Date: 20190205
  Serious: Yes (Hospitalization)
  Sender: FDA-Public Use
  Company Number: CH-REGENERON PHARMACEUTICALS, INC.-2018-48276

PATIENT

DRUGS (13)
  1. EYLEA [Suspect]
     Active Substance: AFLIBERCEPT
     Dosage: 1 DF, ONCE
     Route: 031
     Dates: start: 20170815, end: 20170815
  2. VISCOTEARS [Concomitant]
     Active Substance: CARBOMER
     Indication: PROPHYLAXIS
     Dosage: 4 GTT, QD
     Dates: start: 20160808
  3. EYLEA [Suspect]
     Active Substance: AFLIBERCEPT
     Dosage: 1 DF, ONCE
     Route: 031
     Dates: start: 20160905, end: 20160905
  4. EYLEA [Suspect]
     Active Substance: AFLIBERCEPT
     Dosage: 1 DF, ONCE
     Route: 031
     Dates: start: 20171205, end: 20171205
  5. EYLEA [Suspect]
     Active Substance: AFLIBERCEPT
     Dosage: 1 DF, ONCE
     Route: 031
     Dates: start: 20171024, end: 20171024
  6. EYLEA [Suspect]
     Active Substance: AFLIBERCEPT
     Dosage: 1 DF, ONCE
     Route: 031
     Dates: start: 20170713, end: 20170713
  7. EYLEA [Suspect]
     Active Substance: AFLIBERCEPT
     Dosage: 1 DF, ONCE
     Route: 031
     Dates: start: 20170912, end: 20170912
  8. EYLEA [Suspect]
     Active Substance: AFLIBERCEPT
     Indication: PRODUCT USED FOR UNKNOWN INDICATION
     Dosage: 1 DF, ONCE
     Route: 031
     Dates: start: 20160808, end: 20160808
  9. EYLEA [Suspect]
     Active Substance: AFLIBERCEPT
     Dosage: 1 DF, ONCE
     Route: 031
     Dates: start: 20161025, end: 20161025
  10. EYLEA [Suspect]
     Active Substance: AFLIBERCEPT
     Dosage: 1 DF, ONCE
     Route: 031
     Dates: start: 20161222, end: 20161222
  11. EYLEA [Suspect]
     Active Substance: AFLIBERCEPT
     Dosage: 1 DF, ONCE
     Route: 031
     Dates: start: 20170615, end: 20170615
  12. TOBREX [Concomitant]
     Active Substance: TOBRAMYCIN
     Indication: PROPHYLAXIS
     Dosage: 4 GTT, QD
     Dates: start: 20160808
  13. EYLEA [Suspect]
     Active Substance: AFLIBERCEPT
     Dosage: 1 DF, ONCE
     Route: 031
     Dates: start: 20180130, end: 20180130

REACTIONS (2)
  - Subdural haematoma [Recovered/Resolved]
  - Fall [Recovered/Resolved]
